FAERS Safety Report 5673224-3 (Version None)
Quarter: 2008Q1

REPORT INFORMATION
  Report Type: 
  Country: None (occurrence: None)
  Receive Date: 20080319
  Receipt Date: 20080313
  Transmission Date: 20080703
  Serious: Yes (Hospitalization)
  Sender: FDA-Public Use
  Company Number: GB-SANOFI-SYNTHELABO-A01200802306

PATIENT
  Age: 67 Year
  Sex: Female

DRUGS (6)
  1. CO-CODAMOL [Concomitant]
     Indication: PAIN
     Dosage: UNK
     Route: 048
  2. LOSEC I.V. [Concomitant]
     Indication: ABDOMINAL PAIN UPPER
     Route: 048
  3. LEVOTHYROXINE SODIUM [Concomitant]
     Indication: HYPOTHYROIDISM
     Route: 048
  4. OXALIPLATIN [Suspect]
     Indication: NEOPLASM MALIGNANT
     Route: 042
     Dates: start: 20080108, end: 20080108
  5. BRICARYL [Concomitant]
     Dosage: UNK
     Route: 055
  6. SERETIDE [Concomitant]
     Dosage: UNK
     Route: 055

REACTIONS (2)
  - ARTERIOSPASM CORONARY [None]
  - HYPERSENSITIVITY [None]
